FAERS Safety Report 23642171 (Version 1)
Quarter: 2024Q1

REPORT INFORMATION
  Report Type: Other
  Country: GB (occurrence: GB)
  Receive Date: 20240318
  Receipt Date: 20240318
  Transmission Date: 20240409
  Serious: Yes (Other)
  Sender: FDA-Public Use
  Company Number: GB-MACLEODS PHARMA EU LTD-MAC2024046329

PATIENT

DRUGS (9)
  1. DOLUTEGRAVIR [Suspect]
     Active Substance: DOLUTEGRAVIR
     Indication: Product used for unknown indication
     Dosage: UNK (50/300 MG AT AN UNSPECIFIED FREQUENCY)
     Route: 048
     Dates: start: 20230504
  2. LAMIVUDINE [Suspect]
     Active Substance: LAMIVUDINE
     Indication: Product used for unknown indication
     Dosage: UNK (50/300 MG AT AN UNSPECIFIED FREQUENCY)
     Route: 048
     Dates: start: 20230504
  3. TENOFOVIR DISOPROXIL [Suspect]
     Active Substance: TENOFOVIR DISOPROXIL
     Indication: Product used for unknown indication
     Dosage: 245 MILLIGRAM
     Route: 048
     Dates: start: 20230504
  4. OMEPRAZOLE [Suspect]
     Active Substance: OMEPRAZOLE
     Indication: Product used for unknown indication
     Dosage: 40 MILLIGRAM (40 MG (MILLIGRAM) AT AN UNSPECIFIED FREQUENCY)
     Route: 048
     Dates: start: 20240201
  5. FLUCLOXACILLIN [Suspect]
     Active Substance: FLUCLOXACILLIN
     Indication: Cellulitis orbital
     Dosage: UNK
     Route: 065
  6. FLUCLOXACILLIN [Suspect]
     Active Substance: FLUCLOXACILLIN
     Dosage: UNK (12 G (GRAM) AT AN UNSPECIFIED FREQUENCY)
     Route: 042
  7. SODIUM CHLORIDE [Suspect]
     Active Substance: SODIUM CHLORIDE
     Indication: Medication dilution
     Dosage: UNK (SOLUTION FOR INFUSION) (PL 08828/0034) (0.9% INTRAVENOUS INFUSION BP)
     Route: 042
  8. STERILE WATER [Suspect]
     Active Substance: WATER
     Indication: Medication dilution
     Dosage: UNK
     Route: 065
  9. SODIUM CITRATE [Suspect]
     Active Substance: SODIUM CITRATE
     Indication: Product used for unknown indication
     Dosage: UNK (CITRATE BUFFER PH 6.5-7.5)
     Route: 065

REACTIONS (1)
  - Thrombosis [Recovering/Resolving]

NARRATIVE: CASE EVENT DATE: 20240219
